FAERS Safety Report 8499813-9 (Version None)
Quarter: 2012Q3

REPORT INFORMATION
  Report Type: 
  Country: None (occurrence: None)
  Receive Date: 20120710
  Receipt Date: 20120628
  Transmission Date: 20120928
  Serious: Yes (Death, Hospitalization)
  Sender: FDA-Public Use
  Company Number: CA-SANOFI-AVENTIS-2012SA046750

PATIENT
  Age: 71 Year
  Sex: Male
  Weight: 85.6 kg

DRUGS (12)
  1. IOPAMIDOL [Concomitant]
     Dates: start: 20120511
  2. INVESTIGATIONAL DRUG [Suspect]
     Indication: NON-SMALL CELL LUNG CANCER
     Route: 048
     Dates: start: 20120329, end: 20120505
  3. AMLODIPINE BESYLATE [Concomitant]
  4. DOCETAXEL [Suspect]
     Indication: NON-SMALL CELL LUNG CANCER
     Route: 041
     Dates: start: 20120327, end: 20120327
  5. CRESTOR [Concomitant]
  6. KLONOPIN [Concomitant]
  7. LORAZEPAM [Concomitant]
  8. PROTONIX [Concomitant]
  9. CELEXA [Concomitant]
  10. LOMOTIL [Concomitant]
  11. DOCETAXEL [Suspect]
     Route: 041
     Dates: start: 20120418, end: 20120418
  12. TAMSULOSIN HYDROCHLORIDE [Concomitant]

REACTIONS (2)
  - PNEUMONITIS [None]
  - PLEURAL EFFUSION [None]
